FAERS Safety Report 23584870 (Version 2)
Quarter: 2024Q1

REPORT INFORMATION
  Report Type: Other
  Country: DE (occurrence: None)
  Receive Date: 20240301
  Receipt Date: 20240304
  Transmission Date: 20240410
  Serious: No
  Sender: FDA-Public Use
  Company Number: DE-ROCHE-3411629

PATIENT
  Age: 36 Year
  Sex: Female

DRUGS (19)
  1. OCRELIZUMAB [Suspect]
     Active Substance: OCRELIZUMAB
     Indication: Relapsing multiple sclerosis
     Dosage: DOSE FREQUENCY: ONCE
     Route: 042
     Dates: start: 20220128
  2. OCRELIZUMAB [Suspect]
     Active Substance: OCRELIZUMAB
     Dosage: DOSE FREQUENCY: ONCE
     Route: 042
     Dates: start: 20220811
  3. EUTHYROX [Concomitant]
     Active Substance: LEVOTHYROXINE SODIUM
     Indication: Hypothyroidism
     Dosage: DOSE: 75?DOSE FREQUENCY: QD (EVERY DAY)
     Route: 048
     Dates: start: 2015
  4. CHOLECALCIFEROL [Concomitant]
     Active Substance: CHOLECALCIFEROL
     Indication: Vitamin D deficiency
     Dosage: DOSE: 20000?DOSE FREQUENCY: QS (EVERY WEEK)
     Route: 048
     Dates: start: 202010
  5. ETHINYL ESTRADIOL\LEVONORGESTREL [Concomitant]
     Active Substance: ETHINYL ESTRADIOL\LEVONORGESTREL
     Indication: Prophylaxis
     Dosage: DOSE: 125/30?DOSE FREQUENCY: QD (EVERY DAY)
     Route: 048
     Dates: start: 2015
  6. SOTROVIMAB [Concomitant]
     Active Substance: SOTROVIMAB
     Indication: COVID-19
     Dosage: DOSE: 500?DOSE FREQUENCY: OTHER
     Route: 042
     Dates: start: 20220224, end: 20220224
  7. BACLOFEN [Concomitant]
     Active Substance: BACLOFEN
     Dosage: DOSE: 10?DOSE FREQUENCY: PRN (AS NEEDED)
     Route: 048
     Dates: start: 202202, end: 202205
  8. TIZANIDINE HYDROCHLORIDE [Concomitant]
     Active Substance: TIZANIDINE HYDROCHLORIDE
     Dosage: DOSE: UN?DOSE FREQUENCY: PRN (AS NEEDED)
     Route: 048
     Dates: start: 202301
  9. VALACYCLOVIR HYDROCHLORIDE [Concomitant]
     Active Substance: VALACYCLOVIR HYDROCHLORIDE
     Indication: Oral herpes
     Dosage: DOSE: 500?DOSE FREQUENCY: QD (EVERY DAY)
     Route: 048
     Dates: start: 202211, end: 202301
  10. PREDNISOLONE [Concomitant]
     Active Substance: PREDNISOLONE
     Dosage: DOSE FREQUENCY: ONCE
     Route: 042
     Dates: start: 20220128, end: 20220128
  11. PREDNISOLONE [Concomitant]
     Active Substance: PREDNISOLONE
     Dosage: DOSE FREQUENCY: ONCE
     Route: 042
     Dates: start: 20220214, end: 20220214
  12. PREDNISOLONE [Concomitant]
     Active Substance: PREDNISOLONE
     Dosage: DOSE FREQUENCY: ONCE
     Route: 042
     Dates: start: 20220811, end: 20220811
  13. PREDNISOLONE [Concomitant]
     Active Substance: PREDNISOLONE
     Dosage: DOSE FREQUENCY: ONCE
     Route: 042
     Dates: start: 20230216, end: 20230216
  14. PREDNISOLONE [Concomitant]
     Active Substance: PREDNISOLONE
     Dosage: DOSE FREQUENCY: ONCE
     Route: 042
     Dates: start: 20230817, end: 20230817
  15. EBASTINE [Concomitant]
     Active Substance: EBASTINE
     Dosage: DOSE FREQUENCY: 2 TIMES A DAY FOR 3 DAYS, STARTING THE DAY BEFORE INFUSION
     Route: 048
     Dates: start: 20220127, end: 20220129
  16. EBASTINE [Concomitant]
     Active Substance: EBASTINE
     Dosage: DOSE FREQUENCY: 2 TIMES A DAY FOR 3 DAYS, STARTING THE DAY BEFORE INFUSION
     Route: 048
     Dates: start: 20220213, end: 20220215
  17. EBASTINE [Concomitant]
     Active Substance: EBASTINE
     Dosage: DOSE FREQUENCY: 2 TIMES A DAY FOR 3 DAYS, START 1 DAY BEFORE INFUSION.
     Route: 048
     Dates: start: 20220810, end: 20220812
  18. EBASTINE [Concomitant]
     Active Substance: EBASTINE
     Dosage: DOSE FREQUENCY: 2 TIMES A DAY FOR 3 DAYS, START 1 DAY BEFORE INFUSION
     Route: 048
     Dates: start: 20230215, end: 20230217
  19. EBASTINE [Concomitant]
     Active Substance: EBASTINE
     Dosage: DOSE FREQUENCY: 2 TIMES A DAY FOR 3 DAYS, START 1 DAY BEFORE INFUSION
     Route: 048
     Dates: start: 20230816, end: 20230818

REACTIONS (4)
  - Urinary tract infection [Recovered/Resolved]
  - Herpes virus infection [Not Recovered/Not Resolved]
  - Rash [Recovered/Resolved]
  - Urinary tract infection [Recovered/Resolved]

NARRATIVE: CASE EVENT DATE: 20230101
